FAERS Safety Report 21855333 (Version 1)
Quarter: 2023Q1

REPORT INFORMATION
  Report Type: Spontaneous
  Country: ES (occurrence: ES)
  Receive Date: 20230112
  Receipt Date: 20230112
  Transmission Date: 20230417
  Serious: Yes (Life-Threatening, Hospitalization)
  Sender: FDA-Public Use
  Company Number: ES-SCILEX PHARMACEUTICALS INC.-2022SCX00044

PATIENT
  Age: 52 Year
  Sex: Male

DRUGS (2)
  1. LIDOCAINE [Suspect]
     Active Substance: LIDOCAINE
     Dosage: UNKNOWN
  2. LIDOCAINE [Suspect]
     Active Substance: LIDOCAINE
     Dosage: SKIN PRICK TEST: 10, 1, 0.1 MG/ML

REACTIONS (2)
  - Kounis syndrome [Unknown]
  - Cardiac arrest [Unknown]
